FAERS Safety Report 19283148 (Version 1)
Quarter: 2021Q2

REPORT INFORMATION
  Report Type: Spontaneous
  Country: US (occurrence: US)
  Receive Date: 20210520
  Receipt Date: 20210520
  Transmission Date: 20210717
  Serious: Yes (Other)
  Sender: FDA-Public Use
  Company Number: US-SUNOVION-2021SUN001847

PATIENT
  Age: 65 Year
  Sex: Female

DRUGS (3)
  1. XANAX [Suspect]
     Active Substance: ALPRAZOLAM
     Indication: ANXIETY
     Dosage: 2 MG
  2. LUNESTA [Suspect]
     Active Substance: ESZOPICLONE
     Dosage: 2 MG, HS
     Route: 048
     Dates: start: 1991
  3. LUNESTA [Suspect]
     Active Substance: ESZOPICLONE
     Indication: INSOMNIA
     Dosage: 3 MG, HS
     Route: 048

REACTIONS (9)
  - Crying [Unknown]
  - Eye operation [Unknown]
  - Endoscopy [Unknown]
  - Atrial fibrillation [Unknown]
  - Unwanted awareness during anaesthesia [Unknown]
  - Drug tolerance increased [Unknown]
  - Procedural pain [Unknown]
  - Colonoscopy [Unknown]
  - Eye swelling [Unknown]

NARRATIVE: CASE EVENT DATE: 2013
